FAERS Safety Report 22658304 (Version 1)
Quarter: 2023Q2

REPORT INFORMATION
  Report Type: Report from Study
  Country: BR (occurrence: BR)
  Receive Date: 20230630
  Receipt Date: 20230630
  Transmission Date: 20230721
  Serious: Yes (Other)
  Sender: FDA-Public Use
  Company Number: BR-CELLTRION INC.-2023BR012364

PATIENT

DRUGS (3)
  1. INFLIXIMAB [Suspect]
     Active Substance: INFLIXIMAB
     Indication: Ankylosing spondylitis
     Dosage: UNK
     Route: 042
     Dates: start: 20230411
  2. TRAMADOL [Concomitant]
     Active Substance: TRAMADOL
     Dosage: UNK
  3. IBUPROFEN [Concomitant]
     Active Substance: IBUPROFEN

REACTIONS (5)
  - Inflammation [Recovering/Resolving]
  - Swelling face [Recovering/Resolving]
  - Malaise [Recovering/Resolving]
  - Headache [Recovering/Resolving]
  - Intentional dose omission [Recovering/Resolving]

NARRATIVE: CASE EVENT DATE: 20230525
